FAERS Safety Report 5267486-4 (Version None)
Quarter: 2007Q1

REPORT INFORMATION
  Report Type: 
  Country: None (occurrence: None)
  Receive Date: 20061213
  Receipt Date: 19980501
  Transmission Date: 20070707
  Serious: Yes (Hospitalization)
  Sender: FDA-Public Use
  Company Number: 1998UW46872

PATIENT
  Age: 67 Year
  Sex: Female

DRUGS (5)
  1. ARIMIDEX [Suspect]
     Indication: BREAST CANCER
     Dosage: 1 MG QD PO
     Route: 048
     Dates: start: 19980310
  2. NOLVADEX [Suspect]
     Indication: BREAST CANCER
     Dosage: 20 MG QD PO
     Route: 048
     Dates: start: 19980310
  3. GLUCOPHAGE [Concomitant]
  4. GLYBURIDE [Concomitant]
  5. PROPULSID [Concomitant]

REACTIONS (1)
  - DEEP VEIN THROMBOSIS [None]
